FAERS Safety Report 9746700 (Version 4)
Quarter: 2014Q4

REPORT INFORMATION
  Report Type: Spontaneous
  Country: US (occurrence: US)
  Receive Date: 20131211
  Receipt Date: 20141027
  Transmission Date: 20150529
  Serious: Yes (Hospitalization)
  Sender: FDA-Public Use
  Company Number: US-BAYER-2013-151120

PATIENT
  Age: 29 Year
  Sex: Female
  Weight: 68 kg

DRUGS (7)
  1. PRENATAL VITAMINS [Concomitant]
     Active Substance: VITAMINS
  2. DOCUSATE SODIUM. [Concomitant]
     Active Substance: DOCUSATE SODIUM
  3. IBUPROFEN. [Concomitant]
     Active Substance: IBUPROFEN
  4. OXYCODONE [Concomitant]
     Active Substance: OXYCODONE
  5. LO/OVRAL [Concomitant]
     Active Substance: ETHINYL ESTRADIOL\NORGESTREL
  6. MIRENA [Suspect]
     Active Substance: LEVONORGESTREL
     Indication: CONTRACEPTION
     Dosage: 20 MCG/24HR, CONT
     Route: 015
     Dates: start: 20100408, end: 20111107
  7. HYDROCODONE W/ACETAMINOPHEN [Concomitant]
     Active Substance: ACETAMINOPHEN\HYDROCODONE BITARTRATE

REACTIONS (20)
  - Abortion spontaneous [None]
  - Activities of daily living impaired [None]
  - Injury [None]
  - Drug ineffective [None]
  - Abdominal pain upper [None]
  - Depressed mood [None]
  - Vaginal haemorrhage [None]
  - Scar [None]
  - Abdominal pain [None]
  - Depression [None]
  - Device dislocation [None]
  - Pregnancy with contraceptive device [None]
  - Fear [None]
  - Genital haemorrhage [None]
  - Emotional distress [None]
  - Mental disorder [None]
  - Paraesthesia [None]
  - Uterine perforation [None]
  - Anxiety [None]
  - Abdominal discomfort [None]

NARRATIVE: CASE EVENT DATE: 2011
